FAERS Safety Report 5153734-8 (Version None)
Quarter: 2006Q4

REPORT INFORMATION
  Report Type: 
  Country: None (occurrence: None)
  Receive Date: 20061120
  Receipt Date: 20060502
  Transmission Date: 20070319
  Serious: Yes (Other)
  Sender: FDA-Public Use
  Company Number: US-ELI_LILLY_AND_COMPANY-US200608005631

PATIENT
  Age: 43 Year
  Sex: Male
  Weight: 140.59 kg

DRUGS (2)
  1. ZIPRASIDONE [Concomitant]
     Dates: start: 20040101
  2. ZYPREXA [Suspect]
     Dosage: 20 MG, UNK
     Dates: start: 19970101, end: 20040101

REACTIONS (7)
  - BLOOD CHOLESTEROL ABNORMAL [None]
  - BLOOD TRIGLYCERIDES INCREASED [None]
  - DIABETES MELLITUS [None]
  - GLUCOSE TOLERANCE IMPAIRED [None]
  - HYPERTENSION [None]
  - LACTIC ACIDOSIS [None]
  - OBESITY [None]
